FAERS Safety Report 22645477 (Version 1)
Quarter: 2023Q2

REPORT INFORMATION
  Report Type: Spontaneous
  Country: US (occurrence: None)
  Receive Date: 20230626
  Receipt Date: 20230626
  Transmission Date: 20230722
  Serious: Yes (Hospitalization)
  Sender: FDA-Public Use
  Company Number: None

PATIENT
  Age: 72 Year
  Sex: Male
  Weight: 77.88 kg

DRUGS (2)
  1. YESCARTA [Suspect]
     Active Substance: AXICABTAGENE CILOLEUCEL
     Indication: Diffuse large B-cell lymphoma refractory
     Dosage: OTHER FREQUENCY : ONCE;?
     Route: 042
     Dates: start: 20230613, end: 20230613
  2. YESCARTA [Concomitant]
     Active Substance: AXICABTAGENE CILOLEUCEL
     Dates: start: 20230613, end: 20230613

REACTIONS (5)
  - Lymphocyte adoptive therapy [None]
  - Cytokine release syndrome [None]
  - Immune effector cell-associated neurotoxicity syndrome [None]
  - Magnetic resonance imaging head abnormal [None]
  - Imaging procedure artifact [None]

NARRATIVE: CASE EVENT DATE: 20230614
